FAERS Safety Report 18547413 (Version 3)
Quarter: 2021Q1

REPORT INFORMATION
  Report Type: Spontaneous
  Country: US (occurrence: US)
  Receive Date: 20201125
  Receipt Date: 20210226
  Transmission Date: 20210419
  Serious: Yes (Disabling, Other)
  Sender: FDA-Public Use
  Company Number: US-PURDUE-USA-2020-0166436

PATIENT
  Sex: Male

DRUGS (6)
  1. OXYCONTIN [Suspect]
     Active Substance: OXYCODONE HYDROCHLORIDE
     Indication: PRODUCT USED FOR UNKNOWN INDICATION
     Dosage: UNKNOWN
     Route: 048
  2. OXYCODONE HYDROCHLORIDE (SIMILAR TO NDA 22?272) [Suspect]
     Active Substance: OXYCODONE HYDROCHLORIDE
     Indication: PAIN
     Dosage: 5 MG, Q12H PRN
     Route: 048
  3. HYDROCODONE BITARTRATE AND ACETAMINOPHEN [Suspect]
     Active Substance: ACETAMINOPHEN\HYDROCODONE BITARTRATE
     Indication: PRODUCT USED FOR UNKNOWN INDICATION
     Dosage: UNKNOWN
     Route: 048
  4. TRAMADOL. [Suspect]
     Active Substance: TRAMADOL
     Indication: PRODUCT USED FOR UNKNOWN INDICATION
     Dosage: UNKNOWN
     Route: 065
  5. OXYCODONE HCL CR TABLETS (SIMILAR TO NDA 22?272) [Suspect]
     Active Substance: OXYCODONE HYDROCHLORIDE
     Indication: PRODUCT USED FOR UNKNOWN INDICATION
     Dosage: UNKNOWN
     Route: 048
  6. OXYCODONE/ ACETAMINOPHEN TABLETS [Suspect]
     Active Substance: ACETAMINOPHEN\OXYCODONE HYDROCHLORIDE
     Indication: PRODUCT USED FOR UNKNOWN INDICATION
     Dosage: UNKNOWN
     Route: 048

REACTIONS (27)
  - Hypertension [Unknown]
  - Developmental delay [Unknown]
  - Heart rate irregular [Unknown]
  - Erectile dysfunction [Unknown]
  - Haemorrhage [Unknown]
  - Disability [Unknown]
  - Constipation [Unknown]
  - Hyperhidrosis [Unknown]
  - Pain [Unknown]
  - Decreased appetite [Unknown]
  - Irritable bowel syndrome [Unknown]
  - Antisocial behaviour [Unknown]
  - Prostatomegaly [Unknown]
  - Learning disability [Unknown]
  - Suicidal behaviour [Unknown]
  - Thrombosis [Unknown]
  - Headache [Unknown]
  - Generalised oedema [Unknown]
  - Depression [Unknown]
  - Fatigue [Unknown]
  - Pyrexia [Unknown]
  - Abdominal pain upper [Unknown]
  - Haemorrhoids [Unknown]
  - Drug dependence [Unknown]
  - Liver injury [Unknown]
  - Insomnia [Unknown]
  - Dyspepsia [Unknown]
